FAERS Safety Report 4801993-0 (Version None)
Quarter: 2005Q4

REPORT INFORMATION
  Report Type: 
  Country: None (occurrence: None)
  Receive Date: 20051012
  Receipt Date: 20050930
  Transmission Date: 20060501
  Serious: Yes (Other)
  Sender: FDA-Public Use
  Company Number: 2005089167

PATIENT
  Age: 33 Year
  Sex: Female

DRUGS (2)
  1. ZYRTEC [Suspect]
     Indication: MULTIPLE ALLERGIES
     Dosage: 20 MG (10 MG, 2 IN 1 D), ORAL
     Route: 048
     Dates: start: 20050301
  2. ZYRTEC [Suspect]
     Indication: SINUS DISORDER
     Dosage: 20 MG (10 MG, 2 IN 1 D), ORAL
     Route: 048
     Dates: start: 20050301

REACTIONS (53)
  - ABDOMINAL DISTENSION [None]
  - ABDOMINAL PAIN UPPER [None]
  - ABNORMAL BEHAVIOUR [None]
  - AMNESIA [None]
  - ANXIETY [None]
  - ARRHYTHMIA [None]
  - BACK PAIN [None]
  - BLINDNESS [None]
  - BLOOD URINE PRESENT [None]
  - BREAST ENGORGEMENT [None]
  - BREAST PAIN [None]
  - CHEST PAIN [None]
  - CONFUSIONAL STATE [None]
  - COUGH [None]
  - DEAFNESS [None]
  - DEPRESSION [None]
  - DISTURBANCE IN ATTENTION [None]
  - DIZZINESS [None]
  - DRY MOUTH [None]
  - DYSGEUSIA [None]
  - DYSPNOEA [None]
  - EYE PAIN [None]
  - FATIGUE [None]
  - FEELING HOT AND COLD [None]
  - FLUID RETENTION [None]
  - GASTRITIS [None]
  - HAEMORRHAGE [None]
  - HEADACHE [None]
  - HEART RATE INCREASED [None]
  - HYPERAESTHESIA [None]
  - HYPERHIDROSIS [None]
  - HYPERSOMNIA [None]
  - HYPERTROPHY BREAST [None]
  - HYPOAESTHESIA ORAL [None]
  - INSOMNIA [None]
  - IRRITABILITY [None]
  - MUSCLE SPASMS [None]
  - MUSCLE TWITCHING [None]
  - NASAL POLYPS [None]
  - NAUSEA [None]
  - PAIN [None]
  - PYREXIA [None]
  - RASH MACULO-PAPULAR [None]
  - SYNCOPE [None]
  - THINKING ABNORMAL [None]
  - THROAT TIGHTNESS [None]
  - TOOTHACHE [None]
  - TREMOR [None]
  - URTICARIA [None]
  - VAGINAL DISCHARGE [None]
  - VERTIGO [None]
  - VISION BLURRED [None]
  - VOMITING [None]
